FAERS Safety Report 8380659-7 (Version None)
Quarter: 2012Q2

REPORT INFORMATION
  Report Type: 
  Country: None (occurrence: None)
  Receive Date: 20120523
  Receipt Date: 20120516
  Transmission Date: 20120825
  Serious: Yes (Hospitalization)
  Sender: FDA-Public Use
  Company Number: DE-ROCHE-796861

PATIENT
  Sex: Male

DRUGS (28)
  1. TRAMABETA [Concomitant]
  2. BLINDED ALEGLITAZAR AND BLINDED ALEGLITAZAR [Suspect]
     Indication: CARDIOVASCULAR EVENT PROPHYLAXIS
     Dosage: LAST DOSE PRIOR TO HYPERKALAEMIA: 04/JUL/2011, HYPERTENSIVE CRISIS: 11/AUG/2011
     Route: 048
  3. NEBIVOLOL HCL [Concomitant]
  4. EZETIMIBE [Concomitant]
     Dosage: 10/40MG DAILY
  5. VILDAGLIPTIN [Concomitant]
     Dates: start: 20110312, end: 20110822
  6. SPIRONOLACTONE [Suspect]
     Indication: PRODUCT USED FOR UNKNOWN INDICATION
     Dates: start: 20110504, end: 20110506
  7. LIPROLOG [Concomitant]
  8. OMEGA-3-ACID ETHYL ESTERS [Concomitant]
     Dates: start: 20110312, end: 20110509
  9. ALISKIREN [Concomitant]
     Dates: start: 20110318, end: 20111203
  10. NITROLINGUAL [Concomitant]
     Dosage: FREQUENCY: AS REQUIRED
     Dates: start: 20110509, end: 20110509
  11. OPIUM/NALOXONE TAB [Concomitant]
     Dosage: TDD REPORTED AS 5/2.5 MG
     Dates: start: 20110906, end: 20111215
  12. CLOPIDOGREL [Concomitant]
  13. AMLODIPINE [Concomitant]
     Dates: start: 20100108, end: 20110315
  14. LEVEMIR [Concomitant]
     Dosage: REPORTED AS LEVEMIR INSULIN
  15. SPIRONOLACTONE [Suspect]
  16. ALLOPURINOL [Concomitant]
     Dates: start: 20110108, end: 20111203
  17. PANTOPRAZOLE [Concomitant]
  18. AMLODIPINE [Concomitant]
     Dates: start: 20110509, end: 20111203
  19. NITROLINGUAL [Concomitant]
     Dosage: 4 PUFF SINGLE DOSE
     Dates: start: 20111120, end: 20111120
  20. TORSEMIDE [Suspect]
  21. METFORMIN HCL [Concomitant]
     Dates: start: 20100213, end: 20110311
  22. ASPIRIN [Concomitant]
  23. TORSEMIDE [Suspect]
     Indication: PRODUCT USED FOR UNKNOWN INDICATION
     Dates: start: 20100108, end: 20110509
  24. AMLODIPINE [Concomitant]
     Dates: start: 20110823, end: 20111203
  25. HYDROCHLOROTHIAZIDE [Concomitant]
     Dates: start: 20110401, end: 20110823
  26. CATAPRES [Concomitant]
     Dates: start: 20110509, end: 20110823
  27. DIOVAN [Concomitant]
     Dates: start: 20110108, end: 20110317
  28. DIOVAN [Concomitant]

REACTIONS (3)
  - CAROTID ARTERY STENOSIS [None]
  - HYPERTENSIVE CRISIS [None]
  - HYPERKALAEMIA [None]
